FAERS Safety Report 8762302 (Version 1)
Quarter: 2012Q4

REPORT INFORMATION
  Report Type: 
  Country: VE (occurrence: VE)
  Receive Date: 20120830
  Receipt Date: 20120830
  Transmission Date: 20130627
  Serious: Yes (Other)
  Sender: FDA-Public Use
  Company Number: VE-PFIZER INC-2012211359

PATIENT
  Sex: Female

DRUGS (1)
  1. GENOTROPIN [Suspect]

REACTIONS (1)
  - Teratoma [Unknown]
